FAERS Safety Report 9158631 (Version 1)
Quarter: 2013Q1

REPORT INFORMATION
  Report Type: Spontaneous
  Country: GB (occurrence: GB)
  Receive Date: 20130312
  Receipt Date: 20130312
  Transmission Date: 20140127
  Serious: Yes (Hospitalization)
  Sender: FDA-Public Use
  Company Number: PHHY2013GB022946

PATIENT
  Age: 49 Year
  Sex: Male

DRUGS (3)
  1. CIPROFLOXACIN [Suspect]
     Indication: URINARY TRACT INFECTION
     Route: 048
  2. CIPROFLOXACIN [Suspect]
     Indication: URINARY TRACT INFECTION
     Route: 042
  3. BOTULINUM TOXIN [Concomitant]
     Indication: HYPERTONIC BLADDER

REACTIONS (7)
  - Dysstasia [Unknown]
  - Neuropathy peripheral [Unknown]
  - Hyperaesthesia [Unknown]
  - Allodynia [Unknown]
  - Burning sensation [Unknown]
  - Neuralgia [Recovered/Resolved]
  - Pain [Recovered/Resolved]
